FAERS Safety Report 4944998-1 (Version None)
Quarter: 2006Q1

REPORT INFORMATION
  Report Type: 
  Country: None (occurrence: None)
  Receive Date: 20060117
  Receipt Date: 20050728
  Transmission Date: 20060701
  Serious: Yes (Hospitalization)
  Sender: FDA-Public Use
  Company Number: A03200502290

PATIENT
  Age: 75 Year
  Sex: Male
  Weight: 78.46 kg

DRUGS (6)
  1. PLAVIX [Suspect]
     Indication: GAIT DISTURBANCE
     Dosage: 75 MG QD- ORAL
     Route: 048
     Dates: start: 20050716
  2. QUINAPRIL HCL [Concomitant]
  3. ATENOLOL [Concomitant]
  4. ROSUVASTATIN [Concomitant]
  5. ACETYLSALICYLIC ACID SRT [Concomitant]
  6. CLONAZEPAM [Concomitant]

REACTIONS (2)
  - ASTHENIA [None]
  - TRANSIENT ISCHAEMIC ATTACK [None]
